FAERS Safety Report 5712513-0 (Version None)
Quarter: 2008Q2

REPORT INFORMATION
  Report Type: 
  Country: None (occurrence: None)
  Receive Date: 20080418
  Receipt Date: 20080407
  Transmission Date: 20081010
  Serious: No
  Sender: FDA-Public Use
  Company Number: 000454

PATIENT
  Age: 85 Year
  Sex: Female

DRUGS (8)
  1. PLETAL [Suspect]
     Indication: CEREBRAL INFARCTION
     Dosage: 100 MG, BID ORAL
     Route: 048
     Dates: start: 20080326, end: 20080327
  2. ACENOL (TEMOCAPRIL HYDROCHLORIDE) TABLET [Concomitant]
  3. CONIEL (BENIDIPINE HYDROCHLORIDE) TABLET [Concomitant]
  4. MICARDIS [Concomitant]
  5. WYTENS JPN (GUANABENZ ACETATE) TABLET [Concomitant]
  6. MEVALOTIN JPN (PRAVASTATIN SODIUM) TABLET [Concomitant]
  7. CARBADOGEN (DOXAZOSIN MESILATE) TABLET [Concomitant]
  8. MINITRO (NITROGLYCERIN) TAPE [Concomitant]

REACTIONS (2)
  - BLOOD PRESSURE DECREASED [None]
  - HYPERSENSITIVITY [None]
